FAERS Safety Report 12091972 (Version 1)
Quarter: 2016Q1

REPORT INFORMATION
  Report Type: Spontaneous
  Country: FR (occurrence: FR)
  Receive Date: 20160219
  Receipt Date: 20160219
  Transmission Date: 20160526
  Serious: Yes (Hospitalization)
  Sender: FDA-Public Use
  Company Number: FR-ROCHE-1712655

PATIENT
  Age: 27 Year
  Sex: Female

DRUGS (24)
  1. URSOLVAN [Concomitant]
     Active Substance: URSODIOL
  2. CERTICAN [Suspect]
     Active Substance: EVEROLIMUS
     Indication: COMPLICATIONS OF TRANSPLANTED HEART
     Route: 048
     Dates: start: 20150506
  3. CALTRATE [Concomitant]
     Active Substance: CALCIUM CARBONATE
  4. TOCO [Concomitant]
     Active Substance: UNSPECIFIED INGREDIENT
  5. CELLCEPT [Suspect]
     Active Substance: MYCOPHENOLATE MOFETIL\MYCOPHENOLATE MOFETIL HYDROCHLORIDE
     Indication: COMPLICATIONS OF TRANSPLANTED HEART
     Route: 048
     Dates: start: 20111204, end: 20130221
  6. INEXIUM [Concomitant]
     Active Substance: ESOMEPRAZOLE
  7. IMUREL [Suspect]
     Active Substance: AZATHIOPRINE SODIUM
     Indication: COMPLICATIONS OF TRANSPLANTED HEART
     Route: 048
     Dates: start: 201508, end: 201509
  8. CREON [Concomitant]
     Active Substance: PANCRELIPASE AMYLASE\PANCRELIPASE LIPASE\PANCRELIPASE PROTEASE
  9. UN ALPHA [Concomitant]
  10. VITAMIN A [Concomitant]
     Active Substance: VITAMIN A
  11. CORTANCYL [Suspect]
     Active Substance: PREDNISONE
     Indication: COMPLICATIONS OF TRANSPLANTED HEART
     Route: 048
     Dates: start: 20111204
  12. FOLINORAL [Concomitant]
     Active Substance: LEUCOVORIN CALCIUM
  13. METEOSPASMYL [Concomitant]
     Active Substance: ALVERINE CITRATE\DIMETHICONE
  14. AZITHROMYCINE [Concomitant]
     Active Substance: AZITHROMYCIN DIHYDRATE
  15. TARDYFERON (FRANCE) [Concomitant]
  16. LERCANIDIPINE [Concomitant]
     Active Substance: LERCANIDIPINE
  17. ELISOR [Concomitant]
     Active Substance: PRAVASTATIN SODIUM
  18. UVEDOSE [Concomitant]
     Active Substance: CHOLECALCIFEROL
  19. RENAGEL [Concomitant]
     Active Substance: SEVELAMER HYDROCHLORIDE
  20. VENTOLINE [Concomitant]
     Active Substance: ALBUTEROL
  21. DIFFU K [Concomitant]
     Active Substance: POTASSIUM CHLORIDE
  22. ADVAGRAF [Suspect]
     Active Substance: TACROLIMUS
     Indication: COMPLICATIONS OF TRANSPLANTED HEART
     Route: 048
     Dates: start: 20111204
  23. BISOPROLOL [Concomitant]
     Active Substance: BISOPROLOL
  24. APIDRA [Concomitant]
     Active Substance: INSULIN GLULISINE

REACTIONS (2)
  - Bowen^s disease [Not Recovered/Not Resolved]
  - Actinic keratosis [Recovered/Resolved]

NARRATIVE: CASE EVENT DATE: 20150403
